FAERS Safety Report 7306434-X (Version None)
Quarter: 2011Q1

REPORT INFORMATION
  Report Type: 
  Country: None (occurrence: None)
  Receive Date: 20110210
  Receipt Date: 20110126
  Transmission Date: 20110831
  Serious: Yes (Other)
  Sender: FDA-Public Use
  Company Number: AUR-APL-2011-00359

PATIENT
  Age: 21 Year
  Sex: Female

DRUGS (5)
  1. LEVETIRACETAM [Suspect]
     Indication: EPILEPSY
  2. LEVETIRACETAM [Suspect]
     Indication: EPILEPSY
     Dosage: 250MG-BID
  3. ACETAZOLAMIDE [Suspect]
     Indication: EPILEPSY
     Dosage: 125MG -NOCTE
  4. CLONAZEPAM [Suspect]
     Indication: EPILEPSY
     Dosage: 0.25MG -PRN
  5. LAMOTRIGINE [Suspect]
     Indication: EPILEPSY
     Dosage: 100MG/125MG

REACTIONS (6)
  - MUSCLE TWITCHING [None]
  - GRAND MAL CONVULSION [None]
  - FATIGUE [None]
  - SPEECH DISORDER [None]
  - FEAR [None]
  - NERVOUSNESS [None]
